FAERS Safety Report 5348418-7 (Version None)
Quarter: 2007Q2

REPORT INFORMATION
  Report Type: 
  Country: None (occurrence: None)
  Receive Date: 20070605
  Receipt Date: 20070524
  Transmission Date: 20071010
  Serious: Yes (Other)
  Sender: FDA-Public Use
  Company Number: GXKR2007FR04132

PATIENT
  Age: 61 Year
  Sex: Male

DRUGS (3)
  1. AMOXICILLIN+CLAVULANATE [Suspect]
     Indication: LARYNGITIS
     Dosage: 2 G, QD, ORAL
     Route: 048
     Dates: start: 20070305
  2. SACCHAROMYCES BOULARDII [Concomitant]
  3. PREDNISOLONE [Concomitant]

REACTIONS (2)
  - DYSURIA [None]
  - HEPATITIS [None]
